FAERS Safety Report 18916773 (Version 2)
Quarter: 2021Q1

REPORT INFORMATION
  Report Type: Spontaneous
  Country: IN (occurrence: IN)
  Receive Date: 20210219
  Receipt Date: 20210223
  Transmission Date: 20210420
  Serious: Yes (Other)
  Sender: FDA-Public Use
  Company Number: IN-PFIZER INC-2021133410

PATIENT
  Age: 63 Year
  Sex: Male

DRUGS (10)
  1. LEVIPIL [Concomitant]
     Active Substance: LEVETIRACETAM
     Dosage: 500 MG, 1?0?1
  2. EMESET [Concomitant]
     Active Substance: ONDANSETRON HYDROCHLORIDE
     Indication: VOMITING
     Dosage: 8 MG, 1?1?1 BEFORE FOOD FOR 3 DAYS (AS NEEDED)
  3. DOLO 4 [Concomitant]
     Indication: PYREXIA
  4. PAN [Concomitant]
     Indication: GASTRITIS
     Dosage: 40 MG, 1?0?0 BEFORE FOOD X 10 DAYS, AS NEEDED
  5. DUPHALAC [Concomitant]
     Active Substance: LACTULOSE
     Indication: CONSTIPATION
     Dosage: 10 ML, THRICE DAILY(IF NEEDED)
  6. CRIZALK [Suspect]
     Active Substance: CRIZOTINIB
     Indication: NON-SMALL CELL LUNG CANCER
     Dosage: 250 MG, 2X/DAY
     Route: 048
     Dates: start: 20200714
  7. EMESET [Concomitant]
     Active Substance: ONDANSETRON HYDROCHLORIDE
     Indication: NAUSEA
  8. REDOTIL [Concomitant]
     Indication: DIARRHOEA
     Dosage: 100 MG, AS NEEDED (1 CAP 1?0?0 AS NEEDED)
  9. SUPRACAL [CALCIUM] [Concomitant]
     Dosage: 0?1?0 AFTER FOOD
  10. DOLO 4 [Concomitant]
     Indication: PAIN
     Dosage: 650 MG, AS NEEDED (1 TAB IF NEEDED)

REACTIONS (4)
  - Mitral valve incompetence [Unknown]
  - Aortic valve sclerosis [Unknown]
  - Tricuspid valve incompetence [Unknown]
  - Neoplasm progression [Unknown]

NARRATIVE: CASE EVENT DATE: 202012
